FAERS Safety Report 18492335 (Version 2)
Quarter: 2020Q4

REPORT INFORMATION
  Report Type: Spontaneous
  Country: US (occurrence: US)
  Receive Date: 20201111
  Receipt Date: 20201113
  Transmission Date: 20210114
  Serious: No
  Sender: FDA-Public Use
  Company Number: US-ELI_LILLY_AND_COMPANY-US202011005137

PATIENT
  Sex: Male

DRUGS (1)
  1. LYUMJEV [Suspect]
     Active Substance: INSULIN LISPRO-AABC
     Indication: DIABETES MELLITUS MANAGEMENT
     Dosage: UNK
     Route: 065
     Dates: start: 20201001

REACTIONS (2)
  - Injection site swelling [Not Recovered/Not Resolved]
  - Infusion site pruritus [Not Recovered/Not Resolved]
